FAERS Safety Report 12356327 (Version 3)
Quarter: 2016Q3

REPORT INFORMATION
  Report Type: Spontaneous
  Country: US (occurrence: US)
  Receive Date: 20160511
  Receipt Date: 20160726
  Transmission Date: 20161109
  Serious: Yes (Other)
  Sender: FDA-Public Use
  Company Number: US-BAYER-2016-088432

PATIENT
  Sex: Female

DRUGS (3)
  1. MIRENA [Suspect]
     Active Substance: LEVONORGESTREL
     Dosage: 20 MCG/24HR, CONT
     Route: 015
  2. MIRENA [Suspect]
     Active Substance: LEVONORGESTREL
     Dosage: UNK
  3. SYNTHROID [Concomitant]
     Active Substance: LEVOTHYROXINE SODIUM

REACTIONS (11)
  - Cystitis [Recovered/Resolved]
  - Abdominal pain [Recovered/Resolved]
  - Peripheral coldness [Recovered/Resolved]
  - Feeling abnormal [None]
  - Post procedural haemorrhage [Recovered/Resolved]
  - Uterine leiomyoma [None]
  - Premenstrual syndrome [None]
  - Fatigue [None]
  - Malaise [None]
  - Pelvic pain [None]
  - Vaginal infection [None]
